FAERS Safety Report 15948349 (Version 8)
Quarter: 2020Q1

REPORT INFORMATION
  Report Type: Spontaneous
  Country: US (occurrence: US)
  Receive Date: 20190211
  Receipt Date: 20200116
  Transmission Date: 20200409
  Serious: Yes (Other)
  Sender: FDA-Public Use
  Company Number: US-SA-2019SA038276

PATIENT
  Age: 85 Year
  Sex: Female

DRUGS (2)
  1. DUPIXENT [Suspect]
     Active Substance: DUPILUMAB
     Dosage: 600 MG, 1X
     Route: 058
     Dates: start: 201712, end: 201712
  2. DUPIXENT [Suspect]
     Active Substance: DUPILUMAB
     Dosage: 300 MG, QOW
     Route: 058

REACTIONS (11)
  - Localised infection [Unknown]
  - Skin swelling [Unknown]
  - Pain [Unknown]
  - Skin lesion [Unknown]
  - Erythema [Unknown]
  - Diarrhoea [Unknown]
  - Condition aggravated [Unknown]
  - Pelvic fracture [Unknown]
  - Fall [Unknown]
  - Scab [Unknown]
  - Product storage error [Unknown]

NARRATIVE: CASE EVENT DATE: 201905
